FAERS Safety Report 10227236 (Version 1)
Quarter: 2014Q2

REPORT INFORMATION
  Report Type: Spontaneous
  Country: US (occurrence: None)
  Receive Date: 20140609
  Receipt Date: 20140609
  Transmission Date: 20141212
  Serious: No
  Sender: FDA-Public Use
  Company Number: None

PATIENT
  Age: 32 Year
  Sex: Male
  Weight: 109.32 kg

DRUGS (3)
  1. DULERA [Suspect]
     Indication: BRONCHITIS
     Dosage: 2 PUFF 2+ /9
  2. DULERA [Suspect]
     Indication: WHEEZING
     Dosage: 2 PUFF 2+ /9
  3. DULERA [Suspect]
     Indication: COUGH
     Dosage: 2 PUFF 2+ /9

REACTIONS (5)
  - Hyperhidrosis [None]
  - Chills [None]
  - Oral herpes [None]
  - Oral herpes [None]
  - Tongue disorder [None]
